FAERS Safety Report 4963439-1 (Version None)
Quarter: 2006Q2

REPORT INFORMATION
  Report Type: 
  Country: None (occurrence: None)
  Receive Date: 20060404
  Receipt Date: 20060404
  Transmission Date: 20061013
  Serious: Yes (Hospitalization)
  Sender: FDA-Public Use
  Company Number: None

PATIENT
  Age: 63 Year
  Sex: Male

DRUGS (2)
  1. METOPROLOL TARTRATE [Suspect]
     Dosage: 100 MG PO Q 12 HR
     Route: 048
  2. DILTIAZEM [Suspect]
     Dosage: 240 MG PO QD
     Route: 048

REACTIONS (7)
  - ATRIOVENTRICULAR BLOCK [None]
  - BRADYCARDIA [None]
  - DIZZINESS [None]
  - FATIGUE [None]
  - FEELING ABNORMAL [None]
  - HYPOTENSION [None]
  - SYNCOPE [None]
